FAERS Safety Report 5370732-X (Version None)
Quarter: 2007Q2

REPORT INFORMATION
  Report Type: 
  Country: None (occurrence: None)
  Receive Date: 20070614
  Receipt Date: 20070423
  Transmission Date: 20071010
  Serious: No
  Sender: FDA-Public Use
  Company Number: BDI-009446

PATIENT
  Sex: Female

DRUGS (1)
  1. MULTIHANCE [Suspect]
     Indication: DIAGNOSTIC PROCEDURE
     Dosage: IV
     Route: 042

REACTIONS (3)
  - EYE SWELLING [None]
  - LACRIMATION INCREASED [None]
  - OCULAR HYPERAEMIA [None]
